FAERS Safety Report 9331234 (Version 1)
Quarter: 2013Q2

REPORT INFORMATION
  Report Type: Spontaneous
  Country: US (occurrence: US)
  Receive Date: 20130605
  Receipt Date: 20130605
  Transmission Date: 20140414
  Serious: No
  Sender: FDA-Public Use
  Company Number: US-ASTRAZENECA-2013SE29437

PATIENT
  Age: 58 Year
  Sex: Male
  Weight: 70.3 kg

DRUGS (1)
  1. CRESTOR [Suspect]
     Indication: BLOOD CHOLESTEROL INCREASED
     Route: 048

REACTIONS (5)
  - Ear pain [Unknown]
  - Eye pain [Unknown]
  - Ear discomfort [Unknown]
  - Intraocular pressure test [Unknown]
  - Headache [Unknown]
